FAERS Safety Report 7413868-1 (Version None)
Quarter: 2011Q2

REPORT INFORMATION
  Report Type: 
  Country: None (occurrence: None)
  Receive Date: 20110414
  Receipt Date: 20110404
  Transmission Date: 20111010
  Serious: Yes (Other)
  Sender: FDA-Public Use
  Company Number: ES-AMGEN-ESPSP2011015436

PATIENT
  Age: 62 Year
  Sex: Male
  Weight: 60 kg

DRUGS (2)
  1. ENBREL [Suspect]
     Indication: PSORIASIS
     Dosage: 50 MG, WEEKLY
     Route: 058
     Dates: start: 20100312
  2. ENBREL [Suspect]
     Dosage: 25 MG, 2X/WEEK
     Route: 058

REACTIONS (5)
  - HAEMOGLOBIN INCREASED [None]
  - HAEMATOCRIT INCREASED [None]
  - RED BLOOD CELL COUNT INCREASED [None]
  - HYPERGLOBULINAEMIA [None]
  - INJECTION SITE REACTION [None]
